FAERS Safety Report 25464559 (Version 1)
Quarter: 2025Q2

REPORT INFORMATION
  Report Type: Report from Study
  Country: US (occurrence: US)
  Receive Date: 20250621
  Receipt Date: 20250621
  Transmission Date: 20250716
  Serious: Yes (Other)
  Sender: TRAVERE THERAPEUTICS
  Company Number: US-TRAVERE-2025TVT00931

PATIENT
  Age: 67 Year
  Sex: Female

DRUGS (11)
  1. FILSPARI [Suspect]
     Active Substance: SPARSENTAN
     Indication: Product used for unknown indication
     Route: 048
     Dates: start: 20250428
  2. LIPITOR [Concomitant]
     Active Substance: ATORVASTATIN CALCIUM
  3. CRANBERRY [Concomitant]
     Active Substance: CRANBERRY
  4. CARDIZEM CD [Concomitant]
     Active Substance: DILTIAZEM HYDROCHLORIDE
  5. FERROUS SULFATE [Concomitant]
     Active Substance: FERROUS SULFATE
  6. FISH OIL [Concomitant]
     Active Substance: FISH OIL
  7. COZAAR [Concomitant]
     Active Substance: LOSARTAN POTASSIUM
  8. GLUCOPHAGE [Concomitant]
     Active Substance: METFORMIN HYDROCHLORIDE
  9. MYFORTIC [Concomitant]
     Active Substance: MYCOPHENOLATE SODIUM
  10. DELTASONE [Concomitant]
     Active Substance: PREDNISONE
  11. ENVARSUS XR [Concomitant]
     Active Substance: TACROLIMUS

REACTIONS (9)
  - Glomerular filtration rate decreased [Unknown]
  - Blood creatinine increased [Unknown]
  - Blood urea increased [Unknown]
  - Blood urea nitrogen/creatinine ratio increased [Unknown]
  - Urine protein/creatinine ratio increased [Unknown]
  - Polymerase chain reaction positive [Unknown]
  - Protein urine present [Unknown]
  - BK virus infection [Unknown]
  - Off label use [Unknown]

NARRATIVE: CASE EVENT DATE: 20250607
